FAERS Safety Report 15330083 (Version 2)
Quarter: 2018Q4

REPORT INFORMATION
  Report Type: Spontaneous
  Country: JP (occurrence: JP)
  Receive Date: 20180829
  Receipt Date: 20181015
  Transmission Date: 20190204
  Serious: No
  Sender: FDA-Public Use
  Company Number: JP-009507513-1808JPN011272

PATIENT
  Age: 81 Year
  Sex: Male

DRUGS (3)
  1. GLYBURIDE. [Concomitant]
     Active Substance: GLYBURIDE
     Dosage: UNK
     Dates: start: 20171209, end: 2018
  2. SITAGLIPTIN PHOSPHATE [Suspect]
     Active Substance: SITAGLIPTIN PHOSPHATE
     Indication: TYPE 2 DIABETES MELLITUS
     Dosage: 100 MG (STRENGTH: 12.5MG,25MG,50MG,100MG), AFTER BREAKFAST
     Route: 048
     Dates: start: 20171209
  3. SITAGLIPTIN PHOSPHATE [Suspect]
     Active Substance: SITAGLIPTIN PHOSPHATE
     Dosage: 100 MG (STRENGTH: 12.5MG,25MG,50MG,100MG), AFTER BREAKFAST
     Route: 048
     Dates: end: 2018

REACTIONS (2)
  - Eructation [Recovered/Resolved]
  - Abdominal discomfort [Unknown]

NARRATIVE: CASE EVENT DATE: 2018
